FAERS Safety Report 5703132-0 (Version None)
Quarter: 2008Q2

REPORT INFORMATION
  Report Type: 
  Country: None (occurrence: None)
  Receive Date: 20080411
  Receipt Date: 20080108
  Transmission Date: 20081010
  Serious: Yes (Other)
  Sender: FDA-Public Use
  Company Number: US-PFIZER INC-2007014907

PATIENT
  Sex: Male
  Weight: 107.5 kg

DRUGS (18)
  1. CHANTIX [Suspect]
     Indication: SMOKING CESSATION THERAPY
     Route: 048
  2. AZITHROMYCIN [Suspect]
     Indication: NASOPHARYNGITIS
  3. LEVAQUIN [Suspect]
     Indication: POSTOPERATIVE CARE
  4. GLYNASE PRESTAB TABLET [Suspect]
  5. HUMALOG [Concomitant]
  6. HUMULIN N [Concomitant]
  7. METFORMIN HCL [Concomitant]
     Route: 048
  8. TRICOR [Concomitant]
     Route: 048
  9. PAROXETINE HCL [Concomitant]
     Route: 048
  10. NEURONTIN [Concomitant]
     Route: 048
  11. LISINOPRIL [Concomitant]
     Route: 048
  12. ACETYLSALICYLIC ACID SRT [Concomitant]
     Route: 048
  13. ZETIA [Concomitant]
  14. ZESTRIL [Concomitant]
  15. PAXIL [Concomitant]
  16. REQUIP [Concomitant]
  17. SALINE MIXTURE [Concomitant]
  18. GABAPENTIN [Concomitant]

REACTIONS (1)
  - BLOOD GLUCOSE DECREASED [None]
